FAERS Safety Report 15766866 (Version 1)
Quarter: 2018Q4

REPORT INFORMATION
  Report Type: Spontaneous
  Country: HR (occurrence: HR)
  Receive Date: 20181227
  Receipt Date: 20181227
  Transmission Date: 20190205
  Serious: Yes (Other)
  Sender: FDA-Public Use
  Company Number: PHHY2018HR193290

PATIENT
  Sex: Female

DRUGS (8)
  1. IMATINIB MESILATE [Suspect]
     Active Substance: IMATINIB MESYLATE
     Dosage: 400 UNK, UNK
     Route: 065
     Dates: start: 20170110
  2. IMATINIB MESILATE [Suspect]
     Active Substance: IMATINIB MESYLATE
     Dosage: UNK
     Route: 065
     Dates: start: 20170406
  3. METFORMIN [Concomitant]
     Active Substance: METFORMIN HYDROCHLORIDE
     Indication: PRODUCT USED FOR UNKNOWN INDICATION
     Dosage: 500 MG, UNK
     Route: 065
     Dates: start: 20160720, end: 20170214
  4. DASATINIB. [Concomitant]
     Active Substance: DASATINIB
     Indication: PRODUCT USED FOR UNKNOWN INDICATION
     Dosage: 100 MG, QD
     Route: 065
  5. NILOTINIB [Suspect]
     Active Substance: NILOTINIB
     Indication: CHRONIC MYELOID LEUKAEMIA
     Dosage: 600 MG, QD
     Route: 065
     Dates: start: 20150424
  6. ROSUVASTATIN. [Concomitant]
     Active Substance: ROSUVASTATIN
     Indication: PRODUCT USED FOR UNKNOWN INDICATION
     Dosage: 10 MG, UNK
     Route: 065
  7. IMATINIB MESILATE [Suspect]
     Active Substance: IMATINIB MESYLATE
     Indication: CHRONIC MYELOID LEUKAEMIA
     Dosage: 400 MG, QD
     Route: 065
     Dates: start: 20150224, end: 20150327
  8. NILOTINIB [Suspect]
     Active Substance: NILOTINIB
     Dosage: 200 MG, BID
     Route: 065

REACTIONS (8)
  - Muscle spasms [Not Recovered/Not Resolved]
  - Platelet count abnormal [Unknown]
  - Lymphocyte count abnormal [Unknown]
  - Swelling of eyelid [Not Recovered/Not Resolved]
  - Haemoglobin abnormal [Unknown]
  - Leukopenia [Unknown]
  - Eye swelling [Unknown]
  - Hepatic enzyme abnormal [Unknown]

NARRATIVE: CASE EVENT DATE: 20150327
